FAERS Safety Report 9379011 (Version 1)
Quarter: 2013Q3

REPORT INFORMATION
  Report Type: Report from Study
  Country: FR (occurrence: FR)
  Receive Date: 20130702
  Receipt Date: 20130702
  Transmission Date: 20140515
  Serious: Yes (Hospitalization, Other)
  Sender: FDA-Public Use
  Company Number: FR-JNJFOC-20110711204

PATIENT
  Age: 22 Year
  Sex: Female
  Weight: 66 kg

DRUGS (5)
  1. REMICADE [Suspect]
     Indication: COLITIS ULCERATIVE
     Route: 042
     Dates: start: 20110126, end: 20110712
  2. URSOLVAN [Concomitant]
     Indication: CHOLANGITIS SCLEROSING
     Route: 048
     Dates: start: 20040212
  3. NOVORAPID [Concomitant]
     Indication: DIABETES MELLITUS
     Route: 058
     Dates: start: 200703
  4. YAZ [Concomitant]
     Indication: CONTRACEPTION
     Route: 048
  5. INEXIUM [Concomitant]
     Indication: GASTROOESOPHAGEAL REFLUX DISEASE
     Route: 048
     Dates: start: 2009

REACTIONS (2)
  - Arthralgia [Recovered/Resolved]
  - Lupus-like syndrome [Unknown]
